FAERS Safety Report 5260899-6 (Version None)
Quarter: 2007Q1

REPORT INFORMATION
  Report Type: 
  Country: None (occurrence: None)
  Receive Date: 20070309
  Receipt Date: 20070226
  Transmission Date: 20070707
  Serious: Yes (Hospitalization)
  Sender: FDA-Public Use
  Company Number: US-ELI_LILLY_AND_COMPANY-US200702005193

PATIENT
  Age: 30 Year
  Sex: Female

DRUGS (3)
  1. ZYPREXA [Suspect]
     Dosage: 20 MG, 2/D
     Dates: start: 20070201
  2. ATIVAN [Concomitant]
     Indication: AGITATION
     Dates: start: 20070201
  3. HALDOL [Concomitant]
     Indication: AGITATION
     Dates: start: 20070201

REACTIONS (3)
  - APALLIC SYNDROME [None]
  - NEUROLEPTIC MALIGNANT SYNDROME [None]
  - PRESCRIBED OVERDOSE [None]
